FAERS Safety Report 4311621-9 (Version None)
Quarter: 2004Q1

REPORT INFORMATION
  Report Type: 
  Country: None (occurrence: None)
  Receive Date: 20040303
  Receipt Date: 20040303
  Transmission Date: 20041129
  Serious: Yes (Hospitalization)
  Sender: FDA-Public Use
  Company Number: None

PATIENT
  Age: 72 Year
  Sex: Male

DRUGS (1)
  1. SIMVASTATIN [Suspect]
     Indication: DYSLIPIDAEMIA
     Dosage: 20 MG QHS
     Dates: start: 20031001, end: 20031229

REACTIONS (4)
  - ASTHENIA [None]
  - BLOOD CREATINE PHOSPHOKINASE INCREASED [None]
  - DIZZINESS [None]
  - DYSSTASIA [None]
